FAERS Safety Report 9902918 (Version 1)
Quarter: 2014Q1

REPORT INFORMATION
  Report Type: Spontaneous
  Country: TR (occurrence: TR)
  Receive Date: 20140217
  Receipt Date: 20140217
  Transmission Date: 20141002
  Serious: Yes (Other)
  Sender: FDA-Public Use
  Company Number: PHHY2014TR013566

PATIENT
  Age: 24 Year
  Sex: Female

DRUGS (2)
  1. METOPROLOL [Suspect]
     Dosage: 100 MG, QD
  2. FUROSEMIDE [Suspect]
     Dosage: 40 MG, BID

REACTIONS (3)
  - Foetal distress syndrome [Unknown]
  - Premature labour [Unknown]
  - Exposure during pregnancy [Unknown]
